FAERS Safety Report 5951485-0 (Version None)
Quarter: 2008Q4

REPORT INFORMATION
  Report Type: 
  Country: None (occurrence: None)
  Receive Date: 20081113
  Receipt Date: 20081107
  Transmission Date: 20090506
  Serious: Yes (Hospitalization, Other)
  Sender: FDA-Public Use
  Company Number: DE-WYE-G02535708

PATIENT
  Age: 24 Year
  Sex: Female

DRUGS (13)
  1. VENLAFAXINE HCL [Suspect]
     Indication: DEPRESSION
     Dosage: 37.5 - 150 MG PER DAY
     Route: 048
     Dates: start: 20080828, end: 20080905
  2. VENLAFAXINE HCL [Suspect]
     Dosage: 225 MG DAILY
     Route: 048
     Dates: start: 20080906, end: 20080929
  3. VENLAFAXINE HCL [Suspect]
     Dosage: 150 MG DAILY
     Route: 048
     Dates: start: 20080930, end: 20081006
  4. VENLAFAXINE HCL [Suspect]
     Dosage: 75 MG DAILY
     Route: 048
     Dates: start: 20081007, end: 20081007
  5. VENLAFAXINE HCL [Suspect]
     Dosage: 37.5 MG DAILY
     Route: 048
     Dates: start: 20081008, end: 20081008
  6. VENLAFAXINE HCL [Suspect]
     Dosage: 37.5 MG DAILY
     Route: 048
     Dates: start: 20081010, end: 20080101
  7. QUILONUM - SLOW RELEASE [Concomitant]
     Route: 048
     Dates: start: 20080824
  8. SULPIRIDE [Concomitant]
     Dosage: 50 MG DAILY
     Route: 048
     Dates: start: 20081007, end: 20081009
  9. SULPIRIDE [Concomitant]
     Dosage: 100 MG DAILY
     Route: 048
     Dates: start: 20081010
  10. MIRTAZAPINE [Concomitant]
     Dosage: 45 MG DAILY
     Route: 048
     Dates: start: 20060101
  11. FLUPENTIXOL [Concomitant]
     Dosage: 1 MG DAILY
     Route: 048
     Dates: start: 20080929
  12. DIAZEPAM [Concomitant]
     Route: 048
     Dates: start: 20070801
  13. CARBAMAZEPINE [Concomitant]
     Dosage: 450 MG DAILY
     Route: 048
     Dates: start: 20070801

REACTIONS (3)
  - DRUG WITHDRAWAL SYNDROME [None]
  - PARAESTHESIA [None]
  - SUICIDAL IDEATION [None]
